FAERS Safety Report 4356669-3 (Version None)
Quarter: 2004Q2

REPORT INFORMATION
  Report Type: 
  Country: None (occurrence: None)
  Receive Date: 20040506
  Receipt Date: 20040422
  Transmission Date: 20050107
  Serious: Yes (Death, Hospitalization)
  Sender: FDA-Public Use
  Company Number: RENA-10861

PATIENT
  Age: 72 Year
  Sex: Male

DRUGS (2)
  1. PHOSBLOCK- 250 MG TABLET [Suspect]
     Indication: HYPERPHOSPHATAEMIA
     Dosage: 1.5 G DAILY PO
     Route: 048
     Dates: start: 20030624, end: 20030724
  2. PHOSBLOCK- 250 MG TABLET [Suspect]
     Indication: HYPERPHOSPHATAEMIA
     Dosage: 0.75 G DAILY PO
     Route: 048
     Dates: start: 20030725, end: 20031209

REACTIONS (6)
  - CEREBRAL INFARCTION [None]
  - CONSTIPATION [None]
  - ENTEROCOLITIS [None]
  - HYPOXIC ENCEPHALOPATHY [None]
  - INTESTINAL HAEMORRHAGE [None]
  - PYREXIA [None]
